FAERS Safety Report 7812051-5 (Version None)
Quarter: 2011Q4

REPORT INFORMATION
  Report Type: 
  Country: None (occurrence: None)
  Receive Date: 20111013
  Receipt Date: 20110928
  Transmission Date: 20120403
  Serious: Yes (Death)
  Sender: FDA-Public Use
  Company Number: JP-ROCHE-1000075

PATIENT

DRUGS (2)
  1. XELODA [Suspect]
     Indication: GASTRIC CANCER RECURRENT
     Route: 048
     Dates: start: 20110824
  2. HERCEPTIN [Suspect]
     Indication: GASTRIC CANCER RECURRENT
     Route: 041
     Dates: start: 20110824

REACTIONS (3)
  - NEOPLASM PROGRESSION [None]
  - GASTRIC CANCER RECURRENT [None]
  - DISEASE PROGRESSION [None]
